FAERS Safety Report 8464194-3 (Version None)
Quarter: 2012Q2

REPORT INFORMATION
  Report Type: 
  Country: None (occurrence: None)
  Receive Date: 20120625
  Receipt Date: 20120619
  Transmission Date: 20120825
  Serious: Yes (Hospitalization)
  Sender: FDA-Public Use
  Company Number: PHHY2012FR053743

PATIENT
  Sex: Female

DRUGS (10)
  1. CUBICIN [Suspect]
     Indication: OSTEOMYELITIS
     Dosage: 700 MG, QD
     Route: 042
     Dates: start: 20120502, end: 20120516
  2. VANCOMYCIN [Suspect]
     Indication: OSTEOMYELITIS
     Dosage: 2 G, QD
     Route: 042
     Dates: start: 20120427, end: 20120502
  3. FUROSEMIDE [Suspect]
     Dosage: 20 MG, UNK
     Route: 042
     Dates: start: 20120427, end: 20120501
  4. ORBENIN CAP [Concomitant]
  5. ESIDRIX [Suspect]
     Dosage: 12.5 MG, QD
     Route: 048
     Dates: start: 20120418, end: 20120504
  6. HYZAAR [Concomitant]
  7. ASPIRIN [Concomitant]
  8. GENTAMICIN [Concomitant]
  9. IPERTEN [Concomitant]
  10. RIFADIN [Suspect]
     Indication: OSTEOMYELITIS
     Dosage: UNK
     Route: 048
     Dates: start: 20120502, end: 20120516

REACTIONS (9)
  - ELECTROCARDIOGRAM T WAVE AMPLITUDE DECREASED [None]
  - GASTROINTESTINAL HAEMORRHAGE [None]
  - HYPOKALAEMIA [None]
  - INFECTION [None]
  - MELAENA [None]
  - PLEURAL DISORDER [None]
  - BLOOD CREATINE INCREASED [None]
  - ANAEMIA [None]
  - SEPSIS [None]
